FAERS Safety Report 13172046 (Version 2)
Quarter: 2017Q1

REPORT INFORMATION
  Report Type: Spontaneous
  Country: MT (occurrence: MT)
  Receive Date: 20170201
  Receipt Date: 20170207
  Transmission Date: 20170428
  Serious: Yes (Death, Other)
  Sender: FDA-Public Use
  Company Number: MT-AUROBINDO-AUR-APL-2017-28156

PATIENT
  Age: 33 Year
  Sex: Female

DRUGS (2)
  1. LAMIVUDINE AND ZIDOVUDINE [Suspect]
     Active Substance: LAMIVUDINE\ZIDOVUDINE
     Indication: HIV INFECTION
     Route: 065
  2. LOPINAVIR + RITONAVIR [Suspect]
     Active Substance: LOPINAVIR\RITONAVIR
     Indication: HIV INFECTION
     Route: 065

REACTIONS (13)
  - Hypoalbuminaemia [Unknown]
  - Sepsis [Unknown]
  - Pancytopenia [Unknown]
  - Night sweats [Unknown]
  - Dyspnoea [Unknown]
  - Pyrexia [Unknown]
  - Neck pain [Unknown]
  - Death [Fatal]
  - Lymphadenopathy [Unknown]
  - Immune reconstitution inflammatory syndrome [Unknown]
  - Respiratory failure [Unknown]
  - Nausea [Unknown]
  - Vomiting [Unknown]
